FAERS Safety Report 10562041 (Version 1)
Quarter: 2014Q4

REPORT INFORMATION
  Report Type: Spontaneous
  Country: FR (occurrence: FR)
  Receive Date: 20141104
  Receipt Date: 20141104
  Transmission Date: 20150529
  Serious: Yes (Hospitalization, Other)
  Sender: FDA-Public Use
  Company Number: FR-BRISTOL-MYERS SQUIBB COMPANY-21529490

PATIENT
  Age: 70 Year
  Sex: Female
  Weight: 46 kg

DRUGS (7)
  1. CALCIUM CARBONATE + COLECALCIFEROL [Concomitant]
  2. ALENDRONIC ACID [Concomitant]
     Active Substance: ALENDRONIC ACID
  3. EMTRIVA [Concomitant]
     Active Substance: EMTRICITABINE
  4. NEBILOX [Concomitant]
     Active Substance: NEBIVOLOL HYDROCHLORIDE
  5. DOLUTEGRAVIR [Concomitant]
     Active Substance: DOLUTEGRAVIR
  6. UVEDOSE [Concomitant]
     Active Substance: CHOLECALCIFEROL
  7. REYATAZ [Suspect]
     Active Substance: ATAZANAVIR SULFATE
     Indication: HIV INFECTION
     Route: 048
     Dates: start: 2006, end: 2012

REACTIONS (4)
  - Hydronephrosis [Unknown]
  - Pyelonephritis chronic [Unknown]
  - Nephrolithiasis [Recovered/Resolved]
  - Renal atrophy [Unknown]

NARRATIVE: CASE EVENT DATE: 201409
